FAERS Safety Report 26058894 (Version 1)
Quarter: 2025Q4

REPORT INFORMATION
  Report Type: Spontaneous
  Country: US (occurrence: None)
  Receive Date: 20251117
  Receipt Date: 20251117
  Transmission Date: 20260117
  Serious: Yes (Disabling)
  Sender: FDA-CTU
  Company Number: None

PATIENT
  Age: 66 Year
  Sex: Female
  Weight: 54.9 kg

DRUGS (14)
  1. TYMLOS [Suspect]
     Active Substance: ABALOPARATIDE
     Indication: Osteoporosis
     Dosage: OTHER STRENGTH : MCG PER DOSE;?OTHER QUANTITY : 30 INJECTION(S);?FREQUENCY : AT BEDTIME;?
     Route: 058
     Dates: start: 20251001, end: 20251104
  2. Continuos Heart Loop Monitor [Concomitant]
  3. LEVOTHYROXINE [Concomitant]
     Active Substance: LEVOTHYROXINE
  4. DILTIAZEM [Concomitant]
     Active Substance: DILTIAZEM
  5. SOTALOL HYDROCHLORIDE [Concomitant]
     Active Substance: SOTALOL HYDROCHLORIDE
  6. astatinSertraline HCL [Concomitant]
  7. ROSUVASTATIN CALCIUM [Concomitant]
     Active Substance: ROSUVASTATIN CALCIUM
  8. LUBIPROSTONE [Concomitant]
     Active Substance: LUBIPROSTONE
  9. Ultra Calcium [Concomitant]
  10. VITAMIN D3 [Concomitant]
     Active Substance: CHOLECALCIFEROL
  11. MAGNESIUM [Concomitant]
     Active Substance: MAGNESIUM
  12. FISH OIL\OMEGA-3 FATTY ACIDS [Concomitant]
     Active Substance: FISH OIL\OMEGA-3 FATTY ACIDS
  13. ASTAXANTHIN [Concomitant]
     Active Substance: ASTAXANTHIN
  14. Centrum silver Women 50 plus multivitamin [Concomitant]

REACTIONS (10)
  - Bone pain [None]
  - Arthralgia [None]
  - Arthralgia [None]
  - Arthralgia [None]
  - Arthralgia [None]
  - Arthralgia [None]
  - Insomnia [None]
  - Myalgia [None]
  - Therapy change [None]
  - Gait disturbance [None]

NARRATIVE: CASE EVENT DATE: 20251001
